FAERS Safety Report 7957104-6 (Version None)
Quarter: 2011Q4

REPORT INFORMATION
  Report Type: 
  Country: None (occurrence: None)
  Receive Date: 20111205
  Receipt Date: 20111124
  Transmission Date: 20120403
  Serious: Yes (Death)
  Sender: FDA-Public Use
  Company Number: JP-AMGEN-JPNCT2011058894

PATIENT
  Age: 78 Year
  Sex: Male
  Weight: 65 kg

DRUGS (2)
  1. PANITUMUMAB [Suspect]
     Indication: COLORECTAL CANCER
     Dosage: UNK, Q2WK
     Route: 041
     Dates: start: 20110916, end: 20110930
  2. PANITUMUMAB [Suspect]
     Dosage: UNK, Q2WK
     Route: 041
     Dates: start: 20111014, end: 20111028

REACTIONS (1)
  - INTERSTITIAL LUNG DISEASE [None]
